FAERS Safety Report 9795265 (Version 1)
Quarter: 2014Q1

REPORT INFORMATION
  Report Type: Report from Study
  Country: US (occurrence: US)
  Receive Date: 20140103
  Receipt Date: 20140103
  Transmission Date: 20141002
  Serious: Yes (Death)
  Sender: FDA-Public Use
  Company Number: US-ROCHE-1328689

PATIENT
  Age: 78 Year
  Sex: Female

DRUGS (2)
  1. LUCENTIS [Suspect]
     Indication: AGE-RELATED MACULAR DEGENERATION
     Dosage: LEFT EYE
     Route: 050
     Dates: start: 201303
  2. LUCENTIS [Suspect]
     Indication: RETINAL DEGENERATION

REACTIONS (1)
  - Death [Fatal]
